FAERS Safety Report 10208810 (Version 2)
Quarter: 2014Q2

REPORT INFORMATION
  Report Type: Spontaneous
  Country: AT (occurrence: AT)
  Receive Date: 20140530
  Receipt Date: 20140530
  Transmission Date: 20141212
  Serious: Yes (Other)
  Sender: FDA-Public Use
  Company Number: PHHY2014AT062138

PATIENT
  Age: 88 Year
  Sex: Female
  Weight: 53 kg

DRUGS (8)
  1. VALPROIC ACID [Suspect]
     Indication: GENERALISED NON-CONVULSIVE EPILEPSY
     Dosage: 1600 MG, PER 24 H
  2. MIRTAZAPINE [Interacting]
     Dosage: 15 MG, PER DAY
  3. AMLODIPINE [Interacting]
     Dosage: 10 MG, PER DAY
  4. RIVAROXABAN [Interacting]
     Dosage: 15 MG, PER DAY
  5. NEBIVOLOL [Concomitant]
     Dosage: 5 MG, PER DAY
  6. DIGITOXIN [Concomitant]
     Dosage: 0.07 MG, PER DAY
  7. LISINOPRIL [Concomitant]
     Dosage: 10 MG, PER DAY
  8. GLICLAZIDE [Concomitant]
     Dosage: 45 MG, PER DAY

REACTIONS (4)
  - Coagulation time prolonged [Unknown]
  - Drug level increased [Unknown]
  - Drug level decreased [Unknown]
  - Drug interaction [Unknown]
